FAERS Safety Report 6856027-3 (Version None)
Quarter: 2010Q3

REPORT INFORMATION
  Report Type: 
  Country: None (occurrence: None)
  Receive Date: 20100716
  Receipt Date: 20100716
  Transmission Date: 20110219
  Serious: Yes (Other)
  Sender: FDA-Public Use
  Company Number: None

PATIENT
  Age: 51 Year
  Sex: Female
  Weight: 47.6277 kg

DRUGS (4)
  1. SEROQUEL XR [Suspect]
     Indication: BIPOLAR DISORDER
     Dosage: 300 MG XR 1 IN EVENING ORAL
     Route: 048
     Dates: start: 20090901, end: 20091201
  2. TEGRETOL [Concomitant]
  3. XANAX [Concomitant]
  4. LORAZEPAM [Concomitant]

REACTIONS (2)
  - DYSKINESIA [None]
  - GRUNTING [None]
